FAERS Safety Report 7512413-X (Version None)
Quarter: 2011Q2

REPORT INFORMATION
  Report Type: 
  Country: None (occurrence: None)
  Receive Date: 20110520
  Receipt Date: 20110510
  Transmission Date: 20111010
  Serious: Yes (Other)
  Sender: FDA-Public Use
  Company Number: 1000020767

PATIENT
  Age: 30 Year
  Sex: Male

DRUGS (6)
  1. LITHIUM (LITHIUM) (TABLETS) (LITHIUM) [Concomitant]
  2. CAMCOLIT (LITHIUM CARBONATE) (TABLETS)(LITHIUM CARBONATE) [Concomitant]
  3. ESCITALOPRAM [Suspect]
     Indication: BIPOLAR I DISORDER
     Dosage: 10 MG (10 MG, 1  IN 1 D),ORAL
     Route: 048
     Dates: start: 20110201, end: 20110301
  4. SEROQUEL (QUETIAPINE FUMARATE)(TABLETS)(QUETIAPINE FUMARATE) [Concomitant]
  5. ABILIFY (ARIPIPRAZOLE)(TABLETS)(ARIPIPRAZOLE) [Concomitant]
  6. ZXPREXA (OLANZAPINE)(OLANZAPINE) [Concomitant]

REACTIONS (3)
  - AGGRESSION [None]
  - HYPERTHYROIDISM [None]
  - WEIGHT DECREASED [None]
